FAERS Safety Report 7608588-4 (Version None)
Quarter: 2011Q3

REPORT INFORMATION
  Report Type: 
  Country: None (occurrence: None)
  Receive Date: 20110714
  Receipt Date: 20110711
  Transmission Date: 20111222
  Serious: Yes (Death, Hospitalization, Other)
  Sender: FDA-Public Use
  Company Number: PHBS2008US06757

PATIENT
  Sex: Male

DRUGS (7)
  1. EXJADE [Suspect]
     Indication: IRON OVERLOAD
     Dosage: 500 MG, DAILY
     Route: 048
     Dates: start: 20070501, end: 20071201
  2. FLEXEN [Concomitant]
     Dosage: 10 MG/DAY
     Route: 048
  3. FLOMAX [Concomitant]
     Dosage: 0.4 MG/ DAY
     Route: 048
  4. LISINOPRIL [Concomitant]
     Dosage: 5 MG/ DAY
     Route: 048
     Dates: end: 20080201
  5. EXJADE [Suspect]
     Dosage: 1500 MG, UNK
     Dates: start: 20080117, end: 20080131
  6. BUMETANIDE [Concomitant]
     Dosage: 2 MG/ DAY
     Route: 048
  7. ZANTAC [Concomitant]
     Dosage: 150 MG/ DAY
     Route: 048

REACTIONS (11)
  - URINARY TRACT INFECTION [None]
  - SEPSIS [None]
  - BACTERAEMIA [None]
  - HAEMOLYTIC ANAEMIA [None]
  - OEDEMA [None]
  - URINE OUTPUT DECREASED [None]
  - PULMONARY MASS [None]
  - RENAL FAILURE ACUTE [None]
  - RENAL FAILURE CHRONIC [None]
  - DIARRHOEA [None]
  - DEATH [None]
